FAERS Safety Report 10452298 (Version 1)
Quarter: 2014Q3

REPORT INFORMATION
  Report Type: Spontaneous
  Country: JP (occurrence: JP)
  Receive Date: 20140915
  Receipt Date: 20140915
  Transmission Date: 20150326
  Serious: Yes (Other)
  Sender: FDA-Public Use
  Company Number: PHHY2009JP072671

PATIENT
  Age: 70 Year
  Sex: Female

DRUGS (6)
  1. SUNITINIB [Concomitant]
     Active Substance: SUNITINIB
     Dosage: UNK UKN, UNK
  2. SANDOSTATIN [Suspect]
     Active Substance: OCTREOTIDE ACETATE
     Dosage: UNK UKN, UNK
     Dates: start: 200901
  3. STREPTOZOTOCIN [Concomitant]
     Active Substance: STREPTOZOCIN
     Dosage: UNK UKN, UNK
     Dates: start: 200302
  4. MITOMYCIN C [Concomitant]
     Active Substance: MITOMYCIN
     Dosage: UNK UKN, UNK
     Dates: start: 200003
  5. ADM [Concomitant]
     Dosage: UNK UKN, UNK
     Dates: start: 200003
  6. 5-FU [Concomitant]
     Active Substance: FLUOROURACIL
     Dosage: UNK UKN, UNK
     Dates: start: 200003

REACTIONS (2)
  - Endocrine neoplasm [Unknown]
  - Malignant neoplasm progression [Unknown]
